FAERS Safety Report 22051260 (Version 1)
Quarter: 2023Q1

REPORT INFORMATION
  Report Type: Spontaneous
  Country: BR (occurrence: BR)
  Receive Date: 20230301
  Receipt Date: 20230301
  Transmission Date: 20230418
  Serious: Yes (Other)
  Sender: FDA-Public Use
  Company Number: BR-009507513-2302BRA008891

PATIENT
  Age: 53 Year
  Sex: Female

DRUGS (5)
  1. PEMBROLIZUMAB [Suspect]
     Active Substance: PEMBROLIZUMAB
     Dosage: UNK
     Dates: end: 20220921
  2. PACLITAXEL [Suspect]
     Active Substance: PACLITAXEL
     Indication: Triple negative breast cancer
     Dosage: FOR 12 WEEKS
  3. CARBOPLATIN [Suspect]
     Active Substance: CARBOPLATIN
     Indication: Triple negative breast cancer
     Dosage: FOR 12 WEEKS
  4. ADRIAMYCIN [Suspect]
     Active Substance: DOXORUBICIN HYDROCHLORIDE
     Indication: Triple negative breast cancer
     Dosage: FOR 4 CYCLES EVERY 3 WEEKS
  5. CYCLOPHOSPHAMIDE [Suspect]
     Active Substance: CYCLOPHOSPHAMIDE
     Indication: Triple negative breast cancer
     Dosage: FOR 4 CYCLES EVERY 3 WEEKS

REACTIONS (7)
  - Modified radical mastectomy [Unknown]
  - Malignant neoplasm progression [Unknown]
  - Sarcoidosis [Unknown]
  - Therapy partial responder [Unknown]
  - Positron emission tomogram abnormal [Unknown]
  - Toxicity to various agents [Unknown]
  - Thyroiditis [Unknown]

NARRATIVE: CASE EVENT DATE: 20221103
